FAERS Safety Report 7043086-0 (Version None)
Quarter: 2010Q4

REPORT INFORMATION
  Report Type: 
  Country: None (occurrence: None)
  Receive Date: 20101013
  Receipt Date: 20101001
  Transmission Date: 20110411
  Serious: Yes (Hospitalization)
  Sender: FDA-Public Use
  Company Number: FR-WYE-H17992010

PATIENT
  Sex: Female

DRUGS (6)
  1. EUPANTOL [Suspect]
     Dosage: UNKNOWN
     Route: 048
  2. ZALDIAR [Suspect]
     Indication: PAIN
     Dosage: UNKNOWN
     Route: 048
  3. LEVOTHYROXINE SODIUM [Suspect]
     Indication: HYPOTHYROIDISM
     Route: 048
  4. BISOPROLOL FUMARATE [Suspect]
     Indication: CARDIAC FAILURE
     Dosage: UNKNOWN
     Route: 048
  5. REMICADE [Suspect]
     Route: 042
     Dates: start: 20080925, end: 20100429
  6. CRESTOR [Suspect]
     Indication: DYSLIPIDAEMIA
     Route: 048

REACTIONS (2)
  - CONDITION AGGRAVATED [None]
  - THROMBOTIC THROMBOCYTOPENIC PURPURA [None]
